FAERS Safety Report 19719239 (Version 1)
Quarter: 2021Q3

REPORT INFORMATION
  Report Type: Spontaneous
  Country: US (occurrence: US)
  Receive Date: 20210819
  Receipt Date: 20210819
  Transmission Date: 20211014
  Serious: No
  Sender: FDA-Public Use
  Company Number: US-SA-2021SA270615

PATIENT
  Age: 54 Year
  Sex: Male

DRUGS (2)
  1. DUPIXENT [Suspect]
     Active Substance: DUPILUMAB
     Indication: ASTHMA
     Dosage: 600 MG, 1X
     Route: 058
     Dates: start: 20210714, end: 20210714
  2. DUPIXENT [Suspect]
     Active Substance: DUPILUMAB
     Dosage: UNK

REACTIONS (6)
  - Constipation [Unknown]
  - Euphoric mood [Unknown]
  - Memory impairment [Unknown]
  - Abnormal dreams [Unknown]
  - Disturbance in attention [Unknown]
  - Product use issue [Unknown]

NARRATIVE: CASE EVENT DATE: 20210714
